FAERS Safety Report 13317791 (Version 1)
Quarter: 2017Q1

REPORT INFORMATION
  Report Type: Spontaneous
  Country: US (occurrence: US)
  Receive Date: 20170309
  Receipt Date: 20170309
  Transmission Date: 20170428
  Serious: Yes (Other)
  Sender: FDA-Public Use
  Company Number: None

PATIENT
  Age: 62 Year
  Sex: Male
  Weight: 74.25 kg

DRUGS (1)
  1. NITROFURANTOIN MONOHYDRATE MACROCRYSTALS [Suspect]
     Active Substance: NITROFURANTOIN\NITROFURANTOIN MONOHYDRATE
     Indication: URINARY TRACT INFECTION
     Route: 048
     Dates: start: 20170222, end: 20170226

REACTIONS (9)
  - Jaundice [None]
  - Alanine aminotransferase increased [None]
  - Pallor [None]
  - Faeces pale [None]
  - Pruritus [None]
  - Aspartate aminotransferase increased [None]
  - Gallbladder pain [None]
  - Gallbladder disorder [None]
  - Blood alkaline phosphatase increased [None]

NARRATIVE: CASE EVENT DATE: 20170223
